FAERS Safety Report 4739103-0 (Version None)
Quarter: 2005Q3

REPORT INFORMATION
  Report Type: 
  Country: None (occurrence: None)
  Receive Date: 20050810
  Receipt Date: 20050414
  Transmission Date: 20060218
  Serious: No
  Sender: FDA-Public Use
  Company Number: US-GLAXOSMITHKLINE-A0554295A

PATIENT
  Sex: Female

DRUGS (1)
  1. PAXIL CR [Suspect]
     Indication: DRUG USE FOR UNKNOWN INDICATION
     Route: 048

REACTIONS (7)
  - DISABILITY [None]
  - DRUG WITHDRAWAL SYNDROME [None]
  - LOSS OF EMPLOYMENT [None]
  - MALAISE [None]
  - PAIN [None]
  - PYREXIA [None]
  - SENSORY DISTURBANCE [None]
